FAERS Safety Report 23990320 (Version 2)
Quarter: 2024Q2

REPORT INFORMATION
  Report Type: Spontaneous
  Country: JP (occurrence: JP)
  Receive Date: 20240619
  Receipt Date: 20240627
  Transmission Date: 20240716
  Serious: Yes (Other)
  Sender: FDA-Public Use
  Company Number: JP-BRISTOL-MYERS SQUIBB COMPANY-2024-097681

PATIENT
  Age: 76 Year
  Sex: Male

DRUGS (2)
  1. ELIQUIS [Suspect]
     Active Substance: APIXABAN
     Indication: Heart failure with preserved ejection fraction
     Dates: end: 20240515
  2. ELIQUIS [Suspect]
     Active Substance: APIXABAN
     Indication: Heart failure with preserved ejection fraction

REACTIONS (5)
  - Sinusitis [Unknown]
  - Bladder cancer [Unknown]
  - Ureteric cancer [Unknown]
  - Off label use [Unknown]
  - Interstitial lung disease [Unknown]

NARRATIVE: CASE EVENT DATE: 20240101
